FAERS Safety Report 5460433-1 (Version None)
Quarter: 2007Q3

REPORT INFORMATION
  Report Type: 
  Country: None (occurrence: None)
  Receive Date: 20070919
  Receipt Date: 20070702
  Transmission Date: 20080115
  Serious: Yes (Hospitalization)
  Sender: FDA-Public Use
  Company Number: US-ASTRAZENECA-2007UW15904

PATIENT
  Age: 518 Month
  Sex: Female

DRUGS (5)
  1. SEROQUEL [Suspect]
     Indication: DEPRESSION
     Dates: start: 20031101
  2. HALDOL [Concomitant]
  3. RISPERDAL [Concomitant]
  4. ZYPREXA [Concomitant]
  5. ZOLOFT [Concomitant]

REACTIONS (1)
  - DIABETES MELLITUS [None]
